FAERS Safety Report 13022378 (Version 2)
Quarter: 2017Q1

REPORT INFORMATION
  Report Type: Report from Study
  Country: DE (occurrence: DE)
  Receive Date: 20161213
  Receipt Date: 20170202
  Transmission Date: 20170428
  Serious: Yes (Other)
  Sender: FDA-Public Use
  Company Number: PHHY2016DE160219

PATIENT
  Sex: Male
  Weight: 72.2 kg

DRUGS (3)
  1. IODIDE [Concomitant]
     Active Substance: IODINE
     Indication: GOITRE
     Dosage: 200 MG, QD
     Route: 048
     Dates: start: 20110118
  2. IODIDE [Concomitant]
     Active Substance: IODINE
     Indication: IODINE DEFICIENCY
  3. EXJADE [Suspect]
     Active Substance: DEFERASIROX
     Indication: MYELODYSPLASTIC SYNDROME
     Dosage: 1000 MG (2 X 500 MG), QD
     Route: 048
     Dates: start: 20140410, end: 20150511

REACTIONS (2)
  - Creatinine renal clearance decreased [Not Recovered/Not Resolved]
  - Renal failure [Not Recovered/Not Resolved]

NARRATIVE: CASE EVENT DATE: 20140710
